FAERS Safety Report 14393726 (Version 1)
Quarter: 2018Q1

REPORT INFORMATION
  Report Type: Spontaneous
  Country: US (occurrence: US)
  Receive Date: 20180115
  Receipt Date: 20180115
  Transmission Date: 20180509
  Serious: Yes (Life-Threatening, Disabling)
  Sender: FDA-Public Use
  Company Number: None

PATIENT
  Age: 72 Year
  Sex: Female
  Weight: 172.35 kg

DRUGS (12)
  1. VITAMIN E [Concomitant]
     Active Substance: .ALPHA.-TOCOPHEROL
  2. VITAMIN D [Concomitant]
     Active Substance: CHOLECALCIFEROL
  3. ELIQUIS [Suspect]
     Active Substance: APIXABAN
     Indication: ATRIAL FIBRILLATION
     Route: 048
     Dates: start: 20170605, end: 20180115
  4. ATENOLOL. [Concomitant]
     Active Substance: ATENOLOL
  5. LOSARTAN. [Concomitant]
     Active Substance: LOSARTAN
  6. GLIMEPIRIDE. [Concomitant]
     Active Substance: GLIMEPIRIDE
  7. TERAZOSIN [Concomitant]
     Active Substance: TERAZOSIN\TERAZOSIN HYDROCHLORIDE
  8. TORISIMIDE [Concomitant]
  9. LEVEMIR [Concomitant]
     Active Substance: INSULIN DETEMIR
  10. VITAMIN B12 [Concomitant]
     Active Substance: CYANOCOBALAMIN
  11. ATORVASTIN [Concomitant]
     Active Substance: ATORVASTATIN
  12. POTASSIUM [Concomitant]
     Active Substance: POTASSIUM

REACTIONS (10)
  - Large intestinal obstruction [None]
  - Weight increased [None]
  - Joint swelling [None]
  - Flatulence [None]
  - Abdominal distension [None]
  - Constipation [None]
  - Peripheral swelling [None]
  - Glycosylated haemoglobin increased [None]
  - Feeding disorder [None]
  - Abdominal pain upper [None]

NARRATIVE: CASE EVENT DATE: 20170910
